FAERS Safety Report 6688591-1 (Version None)
Quarter: 2010Q2

REPORT INFORMATION
  Report Type: 
  Country: None (occurrence: None)
  Receive Date: 20100420
  Receipt Date: 20100408
  Transmission Date: 20101027
  Serious: Yes (Other)
  Sender: FDA-Public Use
  Company Number: US-PFIZER INC-2010022665

PATIENT
  Sex: Male
  Weight: 106.58 kg

DRUGS (5)
  1. NEURONTIN [Suspect]
     Indication: BACK PAIN
     Dosage: 600 MG, 3X/DAY
     Route: 048
     Dates: start: 20100101
  2. OXYCODONE [Concomitant]
     Indication: MUSCLE SPASMS
     Dosage: 50 MG, 1X/DAY
     Route: 048
  3. TIZANIDINE [Concomitant]
     Dosage: 4 MG, 1X/DAY
     Route: 048
  4. CELEBREX [Concomitant]
     Indication: ARTHRALGIA
     Dosage: 200 MG, 2X/DAY
     Route: 048
  5. OXYCONTIN [Concomitant]
     Indication: BACK PAIN
     Dosage: 30 MG, 2X/DAY
     Route: 048

REACTIONS (3)
  - CONDITION AGGRAVATED [None]
  - DRUG EFFECT DECREASED [None]
  - MUSCLE SPASMS [None]
